FAERS Safety Report 10020677 (Version 1)
Quarter: 2013Q4

REPORT INFORMATION
  Report Type: Spontaneous
  Country: US (occurrence: None)
  Receive Date: 20131126
  Receipt Date: 20131126
  Transmission Date: 20140711
  Serious: Yes (Congenital Anomaly, Other)
  Sender: FDA-Public Use
  Company Number: 2013HINSPO0210

PATIENT
  Age: 196 Day
  Sex: 0
  Weight: 2.5 kg

DRUGS (7)
  1. ZIDOVUDINE [Suspect]
     Indication: ACQUIRED IMMUNODEFICIENCY SYNDROME
     Dosage: 1 COURSE
     Route: 064
  2. PREZISTA (DARUNAVIR) [Concomitant]
  3. INTELENCE (ETRAVIRINE) [Concomitant]
  4. APTIVUS (TIPRANAVIR) [Concomitant]
  5. ISENTRESS (RAALTEGRAVIR) [Concomitant]
  6. NORVIR (RITONAVIR) [Concomitant]
  7. TRUVADA (TENOFOVIRDISOPROXILFUMARATE+EMTRICITABINE) [Concomitant]

REACTIONS (25)
  - Meconium stain [None]
  - Blood iron decreased [None]
  - Spine malformation [None]
  - Cloacal exstrophy [None]
  - Tethered cord syndrome [None]
  - Genitalia external ambiguous [None]
  - Gastrointestinal malformation [None]
  - Bladder agenesis [None]
  - Gastrointestinal disorder congenital [None]
  - Erythema [None]
  - Caudal regression syndrome [None]
  - Congenital anomaly [None]
  - Lipodystrophy acquired [None]
  - Anal atresia [None]
  - Congenital genital malformation [None]
  - Umbilical cord abnormality [None]
  - Meningomyelocele [None]
  - Sepsis [None]
  - Musculoskeletal pain [None]
  - Exomphalos [None]
  - Premature baby [None]
  - Spina bifida [None]
  - Exomphalos [None]
  - Neural tube defect [None]
  - Unevaluable event [None]
